FAERS Safety Report 15131169 (Version 1)
Quarter: 2018Q3

REPORT INFORMATION
  Report Type: Report from Study
  Country: US (occurrence: US)
  Receive Date: 20180711
  Receipt Date: 20180711
  Transmission Date: 20181010
  Serious: Yes (Death, Hospitalization)
  Sender: FDA-Public Use
  Company Number: US-EXELIXIS-CABO-18013611

PATIENT
  Age: 84 Year
  Sex: Female

DRUGS (1)
  1. CABOMETYX [Suspect]
     Active Substance: CABOZANTINIB S-MALATE
     Indication: RENAL CANCER
     Dosage: 60 MG, QD
     Route: 048
     Dates: start: 20180224

REACTIONS (4)
  - Stomatitis [Unknown]
  - Thrombosis [Unknown]
  - Eating disorder [Unknown]
  - Death [Fatal]

NARRATIVE: CASE EVENT DATE: 20180702
